FAERS Safety Report 16091219 (Version 1)
Quarter: 2019Q1

REPORT INFORMATION
  Report Type: Spontaneous
  Country: ES (occurrence: ES)
  Receive Date: 20190319
  Receipt Date: 20190319
  Transmission Date: 20190418
  Serious: Yes (Other)
  Sender: FDA-Public Use
  Company Number: ES-BAYER-2019-022113

PATIENT
  Age: 62 Year

DRUGS (2)
  1. STIVARGA [Suspect]
     Active Substance: REGORAFENIB
     Indication: METASTASES TO LUNG
     Dosage: 160 MG, QD
  2. STIVARGA [Suspect]
     Active Substance: REGORAFENIB
     Indication: METASTASIS

REACTIONS (10)
  - Epistaxis [None]
  - Erectile dysfunction [None]
  - Diarrhoea [None]
  - Retroperitoneal lymphadenopathy [None]
  - Pulmonary mass [None]
  - Carcinoembryonic antigen increased [None]
  - Dysphonia [None]
  - Metastases to lung [None]
  - Palmar-plantar erythrodysaesthesia syndrome [None]
  - Asthenia [None]
